FAERS Safety Report 6600540-0 (Version None)
Quarter: 2010Q1

REPORT INFORMATION
  Report Type: 
  Country: None (occurrence: None)
  Receive Date: 20100224
  Receipt Date: 20100222
  Transmission Date: 20100710
  Serious: Yes (Disabling)
  Sender: FDA-Public Use
  Company Number: AU-MERCK-1002USA03325

PATIENT
  Age: 70 Year
  Sex: Male

DRUGS (3)
  1. ZETIA [Suspect]
     Route: 048
  2. CRESTOR [Suspect]
     Indication: METABOLIC DISORDER
     Route: 048
  3. ASASANTIN [Suspect]
     Route: 048

REACTIONS (2)
  - ORTHOSTATIC HYPOTENSION [None]
  - VITREOUS FLOATERS [None]
